FAERS Safety Report 6715741-0 (Version None)
Quarter: 2010Q2

REPORT INFORMATION
  Report Type: 
  Country: None (occurrence: None)
  Receive Date: 20100506
  Receipt Date: 20100506
  Transmission Date: 20101027
  Serious: Yes (Hospitalization)
  Sender: FDA-Public Use
  Company Number: None

PATIENT
  Age: 46 Year
  Sex: Female
  Weight: 63.6 kg

DRUGS (7)
  1. ACETAMINOPHEN [Suspect]
     Indication: SUICIDE ATTEMPT
     Dosage: 6.5 G ONCE PO
     Route: 048
     Dates: start: 20100221
  2. OMEPRAZOLE [Concomitant]
  3. DITIAZEM [Concomitant]
  4. AMITRIPTLINE HYDROCHLORIDE TAB [Concomitant]
  5. MONTELUKAST SODIUM [Concomitant]
  6. PROPOXYPHENE NAPSYLATE W/ ACETAMINOPHEN [Concomitant]
  7. MELOXICAM [Concomitant]

REACTIONS (6)
  - ALANINE AMINOTRANSFERASE INCREASED [None]
  - ASPARTATE AMINOTRANSFERASE INCREASED [None]
  - ASTERIXIS [None]
  - BLOOD BILIRUBIN INCREASED [None]
  - INTERNATIONAL NORMALISED RATIO ABNORMAL [None]
  - LETHARGY [None]
